FAERS Safety Report 5325596-7 (Version None)
Quarter: 2007Q2

REPORT INFORMATION
  Report Type: 
  Country: None (occurrence: None)
  Receive Date: 20070515
  Receipt Date: 20070502
  Transmission Date: 20071010
  Serious: Yes (Other)
  Sender: FDA-Public Use
  Company Number: US-ELI_LILLY_AND_COMPANY-US200705000651

PATIENT
  Sex: Male

DRUGS (1)
  1. PROZAC [Suspect]
     Route: 048

REACTIONS (1)
  - GASTRIC BYPASS [None]
